FAERS Safety Report 6465555-4 (Version None)
Quarter: 2009Q4

REPORT INFORMATION
  Report Type: 
  Country: None (occurrence: None)
  Receive Date: 20091124
  Receipt Date: 20091109
  Transmission Date: 20100525
  Serious: Yes (Death, Life-Threatening)
  Sender: FDA-Public Use
  Company Number: DSJ-2007-02272

PATIENT
  Age: 35 Year
  Sex: Female
  Weight: 47.5 kg

DRUGS (16)
  1. OLMESARTAN MEDOXOMIL [Suspect]
     Indication: PORTAL HYPERTENSION
     Dosage: 10MG (10MG, 1 IN 1 D), PER ORAL
     Route: 048
     Dates: start: 20070328, end: 20070328
  2. RIBALL (ALLOPURINOL) (TABLET) (ALLOPURINOL) [Concomitant]
  3. OMEPRAL (OMEPRAZOLE) (TABLET) (OMEPRAZOLE) [Concomitant]
  4. DIART (AZOSEMIDE) (TABLET) (AZOSEMIDE) [Concomitant]
  5. KANAMYCIN (KANAMYCIN) (CAPSULE) (KANAMYCIN) [Concomitant]
  6. PRIMPERAN (METOCLOPRAMIDE) (TABLET) (METOCLOPRAMIDE) [Concomitant]
  7. POLYFUL (POLYCARBOPHIL CALCIUM) (TABLET) (POLYCARBOPHIL CALCIUM) [Concomitant]
  8. FUROSEMIDE (FUROSEMIDE) (TABLET) (FUROSEMIDE) [Concomitant]
  9. PIROLACTON (SPIRONOLACTONE) (TABLET) (SPIRONOLACTONE) [Concomitant]
  10. ADONA (CARBAZOCHROME SODIUM SULFONATE) (TABLET) (CARBAZOCHROME SODIUM [Concomitant]
  11. LACTULOSE SYRUP (LACTULOSE) (SYRUP) (LACTULOSE) [Concomitant]
  12. FERRUM (FERROUS FUMARATE) (CAPSULE) (FERROUS FUMARATE) [Concomitant]
  13. PANANCOCIN-S (CLINDAMYCIN PHOSPHATE) (INJECTION) (CLINDAMYCIN PHOSPHAT [Concomitant]
  14. AMINOLEBAN (AMINO ACIDS NOS) (INJECTION) (AMINO ACIDS NOS) [Concomitant]
  15. HUMAN SERUM ALBUMIN (ALBUMIN HUMAN) (INJECTION) (ALBUMIN HUMAN) [Concomitant]
  16. HUMALOG (INSULIN LISPRO) (INJECTION) (INSULIN LISPRO) [Concomitant]

REACTIONS (11)
  - ABDOMINAL DISTENSION [None]
  - ANURIA [None]
  - ASCITES [None]
  - EMOTIONAL DISTRESS [None]
  - HEADACHE [None]
  - MALAISE [None]
  - MUSCULAR WEAKNESS [None]
  - NECK PAIN [None]
  - PALPITATIONS [None]
  - RENAL FAILURE ACUTE [None]
  - RENAL ISCHAEMIA [None]
